FAERS Safety Report 7785823-3 (Version None)
Quarter: 2011Q3

REPORT INFORMATION
  Report Type: 
  Country: None (occurrence: None)
  Receive Date: 20110929
  Receipt Date: 20110920
  Transmission Date: 20111222
  Serious: Yes (Other)
  Sender: FDA-Public Use
  Company Number: GB-PERRIGO-11GB007769

PATIENT
  Age: 21 Year
  Sex: Female

DRUGS (4)
  1. LAMICTAL [Concomitant]
     Indication: PRODUCT USED FOR UNKNOWN INDICATION
     Dosage: UNK
     Route: 065
  2. CETIRIZINE HCL [Suspect]
     Indication: SWELLING FACE
  3. CETIRIZINE HCL [Suspect]
     Indication: OEDEMA PERIPHERAL
     Dosage: 1 DF, QD
     Route: 048
     Dates: start: 20061116, end: 20110501
  4. CETIRIZINE HCL [Suspect]
     Indication: HYPERSENSITIVITY

REACTIONS (1)
  - EPILEPSY [None]
